FAERS Safety Report 12684519 (Version 1)
Quarter: 2016Q3

REPORT INFORMATION
  Report Type: Spontaneous
  Country: DE (occurrence: DE)
  Receive Date: 20160825
  Receipt Date: 20160825
  Transmission Date: 20161109
  Serious: Yes (Other)
  Sender: FDA-Public Use
  Company Number: DE-IGSA-GTI004502

PATIENT
  Sex: Female
  Weight: 62 kg

DRUGS (13)
  1. GAMUNEX [Suspect]
     Active Substance: HUMAN IMMUNOGLOBULIN G
     Indication: LEWIS-SUMNER SYNDROME
     Route: 042
     Dates: start: 20151028
  2. GAMUNEX [Suspect]
     Active Substance: HUMAN IMMUNOGLOBULIN G
     Indication: LEWIS-SUMNER SYNDROME
     Route: 042
     Dates: start: 20160122
  3. GAMUNEX [Suspect]
     Active Substance: HUMAN IMMUNOGLOBULIN G
     Indication: LEWIS-SUMNER SYNDROME
     Route: 042
     Dates: start: 20150831
  4. GAMUNEX [Suspect]
     Active Substance: HUMAN IMMUNOGLOBULIN G
     Indication: LEWIS-SUMNER SYNDROME
     Route: 042
     Dates: start: 20160429
  5. GAMUNEX [Suspect]
     Active Substance: HUMAN IMMUNOGLOBULIN G
     Indication: LEWIS-SUMNER SYNDROME
     Route: 042
     Dates: start: 20151125
  6. GAMUNEX [Suspect]
     Active Substance: HUMAN IMMUNOGLOBULIN G
     Indication: LEWIS-SUMNER SYNDROME
     Route: 042
     Dates: start: 20160212
  7. GAMUNEX [Suspect]
     Active Substance: HUMAN IMMUNOGLOBULIN G
     Indication: LEWIS-SUMNER SYNDROME
     Route: 042
     Dates: start: 2011
  8. GAMUNEX [Suspect]
     Active Substance: HUMAN IMMUNOGLOBULIN G
     Indication: LEWIS-SUMNER SYNDROME
     Route: 042
     Dates: start: 20151017
  9. GAMUNEX [Suspect]
     Active Substance: HUMAN IMMUNOGLOBULIN G
     Indication: LEWIS-SUMNER SYNDROME
     Route: 042
     Dates: start: 20151229
  10. GAMUNEX [Suspect]
     Active Substance: HUMAN IMMUNOGLOBULIN G
     Indication: LEWIS-SUMNER SYNDROME
     Route: 042
     Dates: start: 20150922
  11. GAMUNEX [Suspect]
     Active Substance: HUMAN IMMUNOGLOBULIN G
     Indication: LEWIS-SUMNER SYNDROME
     Route: 042
     Dates: start: 20160330
  12. GAMUNEX [Suspect]
     Active Substance: HUMAN IMMUNOGLOBULIN G
     Indication: LEWIS-SUMNER SYNDROME
     Route: 042
     Dates: start: 20150818
  13. GAMUNEX [Suspect]
     Active Substance: HUMAN IMMUNOGLOBULIN G
     Indication: LEWIS-SUMNER SYNDROME
     Route: 042
     Dates: start: 20151214

REACTIONS (2)
  - Suspected transmission of an infectious agent via product [Recovered/Resolved]
  - Hepatitis B [Recovered/Resolved]

NARRATIVE: CASE EVENT DATE: 2015
